FAERS Safety Report 6239734-5 (Version None)
Quarter: 2009Q2

REPORT INFORMATION
  Report Type: 
  Country: None (occurrence: None)
  Receive Date: 20090619
  Receipt Date: 20090602
  Transmission Date: 20091009
  Serious: Yes (Hospitalization)
  Sender: FDA-Public Use
  Company Number: 000960

PATIENT
  Sex: Female

DRUGS (3)
  1. VIMPAT [Suspect]
     Dosage: (100 MG BID ORAL)
     Route: 048
  2. CARBAMAZEPINE [Suspect]
     Dosage: (12.5 DF, 12.5 TABLETS OVER HOURS ORAL)
     Route: 048
  3. OXCARBAZEPINE [Suspect]

REACTIONS (4)
  - CONVULSION [None]
  - ELECTROCARDIOGRAM T WAVE INVERSION [None]
  - TACHYCARDIA [None]
  - VOMITING [None]
